FAERS Safety Report 15444506 (Version 1)
Quarter: 2018Q3

REPORT INFORMATION
  Report Type: Spontaneous
  Country: US (occurrence: US)
  Receive Date: 20180928
  Receipt Date: 20180928
  Transmission Date: 20181010
  Serious: Yes (Death)
  Sender: FDA-Public Use
  Company Number: US-NOVAST LABORATORIES, LTD-US-2018NOV000344

PATIENT
  Age: 35 Week

DRUGS (1)
  1. BUTALBITAL, ACETAMINOPHEN, AND CAFFEINE [Suspect]
     Active Substance: ACETAMINOPHEN\BUTALBITAL\CAFFEINE
     Indication: FOETAL EXPOSURE DURING PREGNANCY
     Dosage: 30 G, UNK
     Route: 064

REACTIONS (5)
  - Liver injury [Fatal]
  - Foetal exposure during pregnancy [Unknown]
  - Placental insufficiency [Fatal]
  - Toxicity to various agents [Fatal]
  - Stillbirth [Fatal]
